FAERS Safety Report 16445400 (Version 1)
Quarter: 2019Q2

REPORT INFORMATION
  Report Type: Spontaneous
  Country: AU (occurrence: AU)
  Receive Date: 20190618
  Receipt Date: 20190618
  Transmission Date: 20190711
  Serious: Yes (Death, Hospitalization, Other)
  Sender: FDA-Public Use
  Company Number: PHHY2019AU138477

PATIENT
  Age: 62 Year
  Sex: Male

DRUGS (22)
  1. CARVEDILOL. [Suspect]
     Active Substance: CARVEDILOL
     Indication: PRODUCT USED FOR UNKNOWN INDICATION
     Dosage: 12.5 MG, BID
     Route: 065
  2. FUROSEMIDE. [Suspect]
     Active Substance: FUROSEMIDE
     Indication: PRODUCT USED FOR UNKNOWN INDICATION
     Route: 065
  3. WARFARIN [Suspect]
     Active Substance: WARFARIN
     Indication: TRANSIENT ISCHAEMIC ATTACK
     Dosage: 3 MG, QD
     Route: 065
     Dates: start: 2013
  4. WARFARIN [Suspect]
     Active Substance: WARFARIN
     Dosage: 3 MG, QD
     Route: 065
     Dates: start: 20160928
  5. ISOSORBIDE MONONITRATE. [Suspect]
     Active Substance: ISOSORBIDE MONONITRATE
     Indication: PRODUCT USED FOR UNKNOWN INDICATION
     Dosage: 60 MG, QD
     Route: 065
  6. GLICLAZIDE [Suspect]
     Active Substance: GLICLAZIDE
     Indication: PRODUCT USED FOR UNKNOWN INDICATION
     Dosage: 60 MG, QD
     Route: 065
     Dates: start: 20160928
  7. ATORVASTATIN [Suspect]
     Active Substance: ATORVASTATIN
     Indication: PRODUCT USED FOR UNKNOWN INDICATION
     Dosage: 40 MG, NOCTE
     Route: 065
  8. ALLOPURINOL. [Suspect]
     Active Substance: ALLOPURINOL
     Indication: PRODUCT USED FOR UNKNOWN INDICATION
     Dosage: 200 MG, QD
     Route: 065
  9. PERINDOPRIL [Suspect]
     Active Substance: PERINDOPRIL
     Indication: PRODUCT USED FOR UNKNOWN INDICATION
     Dosage: 10 MG, UNK
     Route: 065
  10. BUMETANIDE. [Suspect]
     Active Substance: BUMETANIDE
     Dosage: 5 MG, BID
     Route: 065
  11. DIGOXIN. [Suspect]
     Active Substance: DIGOXIN
     Indication: PRODUCT USED FOR UNKNOWN INDICATION
     Dosage: 62.5 UG, QD
     Route: 065
  12. ONBREZ BREEZHALER [Suspect]
     Active Substance: INDACATEROL
     Indication: PRODUCT USED FOR UNKNOWN INDICATION
     Route: 065
  13. PANTOPRAZOLE [Suspect]
     Active Substance: PANTOPRAZOLE
     Indication: PRODUCT USED FOR UNKNOWN INDICATION
     Dosage: 40 MG, QD
     Route: 065
  14. SOTALOL. [Suspect]
     Active Substance: SOTALOL
     Indication: PRODUCT USED FOR UNKNOWN INDICATION
     Dosage: 80 MG, BID
     Route: 065
     Dates: end: 201511
  15. EPLERENONE. [Suspect]
     Active Substance: EPLERENONE
     Dosage: 25 MG, QD
     Route: 065
  16. EPLERENONE. [Suspect]
     Active Substance: EPLERENONE
     Dosage: 25 MG, QD
     Route: 065
     Dates: start: 20160928
  17. BUMETANIDE. [Suspect]
     Active Substance: BUMETANIDE
     Indication: PRODUCT USED FOR UNKNOWN INDICATION
     Dosage: 4 MG, BID
     Route: 065
  18. PERINDOPRIL [Suspect]
     Active Substance: PERINDOPRIL
     Dosage: 10 MG, UNK
     Route: 065
     Dates: start: 20160928
  19. SPIRIVA [Suspect]
     Active Substance: TIOTROPIUM BROMIDE MONOHYDRATE
     Indication: PRODUCT USED FOR UNKNOWN INDICATION
     Route: 065
  20. BUMETANIDE. [Suspect]
     Active Substance: BUMETANIDE
     Dosage: 4 MG, BID
     Route: 065
  21. EPLERENONE. [Suspect]
     Active Substance: EPLERENONE
     Indication: PRODUCT USED FOR UNKNOWN INDICATION
     Dosage: 50 MG, QD
     Route: 065
  22. BUMETANIDE. [Suspect]
     Active Substance: BUMETANIDE
     Dosage: 4 MG, BID
     Route: 065
     Dates: start: 20160928

REACTIONS (41)
  - Cardiac failure chronic [Unknown]
  - Hyperkalaemia [Unknown]
  - Acute kidney injury [Unknown]
  - Atrial fibrillation [Unknown]
  - Mitral valve incompetence [Unknown]
  - Arteriosclerosis coronary artery [Unknown]
  - Lung hyperinflation [Unknown]
  - Cardiomegaly [Unknown]
  - Incarcerated hernia [Unknown]
  - Gastrointestinal haemorrhage [Unknown]
  - Pneumonia [Unknown]
  - Weight decreased [Unknown]
  - Pulmonary congestion [Unknown]
  - Interstitial lung disease [Unknown]
  - Venous pressure jugular increased [Unknown]
  - Dyspnoea [Unknown]
  - Urinary tract infection [Unknown]
  - Tricuspid valve incompetence [Unknown]
  - Type 2 diabetes mellitus [Unknown]
  - Gastrointestinal angiectasia [Unknown]
  - End stage renal disease [Fatal]
  - Sepsis [Unknown]
  - International normalised ratio increased [Unknown]
  - Systolic dysfunction [Unknown]
  - Ventricular dyskinesia [Unknown]
  - Right atrial dilatation [Unknown]
  - Cardiac failure acute [Unknown]
  - Cardiac failure congestive [Unknown]
  - Hypovolaemia [Unknown]
  - Staphylococcal sepsis [Unknown]
  - Right ventricular failure [Unknown]
  - Left ventricular dilatation [Unknown]
  - Cardiac failure [Fatal]
  - Renal impairment [Unknown]
  - Blood creatinine increased [Unknown]
  - Faeces discoloured [Unknown]
  - Dizziness [Unknown]
  - Oedema peripheral [Unknown]
  - Left atrial dilatation [Unknown]
  - Right ventricular dilatation [Unknown]
  - Ventricular hypertrophy [Unknown]

NARRATIVE: CASE EVENT DATE: 201511
